FAERS Safety Report 17083881 (Version 2)
Quarter: 2019Q4

REPORT INFORMATION
  Report Type: Report from Study
  Country: CN (occurrence: CN)
  Receive Date: 20191127
  Receipt Date: 20191220
  Transmission Date: 20200122
  Serious: Yes (Hospitalization)
  Sender: FDA-Public Use
  Company Number: CN-UCBSA-2019048739

PATIENT
  Age: 3 Year
  Sex: Male
  Weight: 13.6 kg

DRUGS (2)
  1. LACOSAMIDE EP [Suspect]
     Active Substance: LACOSAMIDE
     Indication: EPILEPSY
     Dosage: 8 MILLILITER, 2X/DAY (BID)
     Route: 048
     Dates: start: 20191018
  2. LACOSAMIDE EP [Suspect]
     Active Substance: LACOSAMIDE
     Indication: PARTIAL SEIZURES
     Dosage: 14 MILLILITER, ONCE DAILY (QD)
     Route: 048
     Dates: start: 20190526

REACTIONS (1)
  - Tonsillar hypertrophy [Recovered/Resolved]

NARRATIVE: CASE EVENT DATE: 20191009
